FAERS Safety Report 6654673-3 (Version None)
Quarter: 2010Q1

REPORT INFORMATION
  Report Type: 
  Country: None (occurrence: None)
  Receive Date: 20100326
  Receipt Date: 20100322
  Transmission Date: 20100710
  Serious: Yes (Hospitalization, Disabling, Other)
  Sender: FDA-Public Use
  Company Number: US-MERCK-0705USA01439

PATIENT
  Age: 36 Year
  Sex: Female

DRUGS (2)
  1. FOSAMAX [Suspect]
     Indication: OSTEOPOROSIS
     Route: 048
     Dates: start: 20020101
  2. FOSAMAX [Suspect]
     Route: 048
     Dates: start: 20030707, end: 20050101

REACTIONS (44)
  - ABDOMINAL PAIN UPPER [None]
  - ANAEMIA [None]
  - ANXIETY [None]
  - BACK PAIN [None]
  - CELLULITIS [None]
  - CHRONIC HEPATIC FAILURE [None]
  - CLAVICLE FRACTURE [None]
  - COAGULOPATHY [None]
  - CONVULSION [None]
  - DEPRESSION [None]
  - DERMATITIS [None]
  - DIARRHOEA [None]
  - DRUG ABUSE [None]
  - DRUG ADMINISTRATION ERROR [None]
  - FALL [None]
  - FOLATE DEFICIENCY [None]
  - GASTRIC HAEMORRHAGE [None]
  - GASTROINTESTINAL DISORDER [None]
  - HAEMANGIOMA OF LIVER [None]
  - HEAD INJURY [None]
  - HEPATIC CIRRHOSIS [None]
  - HEPATIC ENCEPHALOPATHY [None]
  - HIATUS HERNIA [None]
  - HYPOKALAEMIA [None]
  - HYPONATRAEMIA [None]
  - HYPONATRAEMIC ENCEPHALOPATHY [None]
  - LOSS OF CONSCIOUSNESS [None]
  - MASS [None]
  - MEMORY IMPAIRMENT [None]
  - MICROCYTIC ANAEMIA [None]
  - MUSCLE SPASTICITY [None]
  - NAUSEA [None]
  - NUTRITIONAL CONDITION ABNORMAL [None]
  - ORAL INFECTION [None]
  - OSTEOMYELITIS [None]
  - OSTEONECROSIS [None]
  - PAIN IN JAW [None]
  - PORTAL HYPERTENSIVE GASTROPATHY [None]
  - PSYCHOTIC DISORDER [None]
  - PULPITIS DENTAL [None]
  - THROMBOCYTOPENIA [None]
  - TOOTH LOSS [None]
  - VARICES OESOPHAGEAL [None]
  - VITAMIN B12 DEFICIENCY [None]
